FAERS Safety Report 25323787 (Version 1)
Quarter: 2025Q2

REPORT INFORMATION
  Report Type: Spontaneous
  Country: CN (occurrence: CN)
  Receive Date: 20250516
  Receipt Date: 20250516
  Transmission Date: 20250716
  Serious: Yes (Hospitalization)
  Sender: ORGANON
  Company Number: CN-ORGANON-O2505CHN002648

PATIENT
  Age: 30 Year
  Sex: Female
  Weight: 61 kg

DRUGS (3)
  1. FOLLITROPIN BETA [Suspect]
     Active Substance: FOLLITROPIN BETA
     Indication: Ovulation induction
     Dosage: 150 INTERNATIONAL UNIT, QD
     Route: 030
     Dates: start: 20250412, end: 20250421
  2. ORGALUTRAN [Concomitant]
     Active Substance: GANIRELIX ACETATE
     Indication: Ovulation induction
     Dosage: 0.25 MILLIGRAM, QD (STRENGTH: 0.5ML:0.25MG)
     Route: 058
     Dates: start: 20250416, end: 20250421
  3. MENOTROPINS [Concomitant]
     Active Substance: MENOTROPINS
     Indication: Ovulation induction
     Dosage: 75 INTERNATIONAL UNIT, QD
     Route: 030
     Dates: start: 20250418, end: 20250421

REACTIONS (2)
  - Tonsillitis [Unknown]
  - White blood cell count increased [Recovering/Resolving]

NARRATIVE: CASE EVENT DATE: 20250418
